FAERS Safety Report 18969561 (Version 1)
Quarter: 2021Q1

REPORT INFORMATION
  Report Type: Spontaneous
  Country: IT (occurrence: IT)
  Receive Date: 20210304
  Receipt Date: 20210304
  Transmission Date: 20210420
  Serious: Yes (Hospitalization)
  Sender: FDA-Public Use
  Company Number: IT-ASTRAZENECA-2021A087818

PATIENT
  Age: 36 Year
  Sex: Female

DRUGS (2)
  1. TOPAMAX [Suspect]
     Active Substance: TOPIRAMATE
     Indication: DRUG ABUSE
     Dosage: ABUSE/IMPROPER USE90.0DF ONCE/SINGLE ADMINISTRATION
     Route: 048
     Dates: start: 20210130, end: 20210130
  2. QUETIAPINE. [Suspect]
     Active Substance: QUETIAPINE
     Indication: DRUG ABUSE
     Dosage: ABUSE/IMPROPER USE25.0DF ONCE/SINGLE ADMINISTRATION
     Route: 048
     Dates: start: 20210130, end: 20210130

REACTIONS (3)
  - Drug abuse [Not Recovered/Not Resolved]
  - Metabolic acidosis [Not Recovered/Not Resolved]
  - Epilepsy [Not Recovered/Not Resolved]

NARRATIVE: CASE EVENT DATE: 20210130
